FAERS Safety Report 6453920-0 (Version None)
Quarter: 2009Q4

REPORT INFORMATION
  Report Type: 
  Country: None (occurrence: None)
  Receive Date: 20091117
  Receipt Date: 20091107
  Transmission Date: 20100525
  Serious: Yes (Other)
  Sender: FDA-Public Use
  Company Number: 232732J09USA

PATIENT
  Age: 56 Year
  Sex: Male

DRUGS (3)
  1. REBIF [Suspect]
     Indication: MULTIPLE SCLEROSIS
     Dosage: 44 MCG, 3 IN 1 WEEKS, SUBCUTANEOUS
     Route: 058
     Dates: start: 20090409
  2. ALPHAGAN EYE DROPS (BRIMONIDINE TARTRATE) [Concomitant]
  3. PREDNISONE EYE DROPS (PREDNISONE) [Concomitant]

REACTIONS (5)
  - BACK PAIN [None]
  - CONDITION AGGRAVATED [None]
  - DYSURIA [None]
  - INJECTION SITE PAIN [None]
  - PYREXIA [None]
